FAERS Safety Report 9159216 (Version 1)
Quarter: 2013Q1

REPORT INFORMATION
  Report Type: Spontaneous
  Country: US (occurrence: None)
  Receive Date: 20130311
  Receipt Date: 20130311
  Transmission Date: 20140127
  Serious: Yes (Death)
  Sender: FDA-Public Use
  Company Number: IPC201303-000061

PATIENT
  Sex: 0

DRUGS (2)
  1. METOCLOPRAMIDE HYDROCHLORIDE [Suspect]
  2. REGLAN [Suspect]

REACTIONS (1)
  - Tardive dyskinesia [None]
